FAERS Safety Report 10542718 (Version 4)
Quarter: 2014Q4

REPORT INFORMATION
  Report Type: Spontaneous
  Country: US (occurrence: US)
  Receive Date: 20141027
  Receipt Date: 20141124
  Transmission Date: 20150529
  Serious: Yes (Death, Hospitalization)
  Sender: FDA-Public Use
  Company Number: US-UNITED THERAPEUTICS-UNT-2014-009240

PATIENT
  Age: 78 Year
  Sex: Female
  Weight: 107.4 kg

DRUGS (7)
  1. ORENITRAM [Suspect]
     Active Substance: TREPROSTINIL
     Indication: PULMONARY ARTERIAL HYPERTENSION
     Dosage: 0.75 MG, TID
     Route: 048
     Dates: end: 20141009
  2. ORENITRAM [Suspect]
     Active Substance: TREPROSTINIL
     Dosage: TITRATE TO 12 MG, TID
     Route: 048
     Dates: start: 20141006
  3. WARFARIN [Concomitant]
     Active Substance: WARFARIN
     Indication: PRODUCT USED FOR UNKNOWN INDICATION
  4. OPSUMIT [Concomitant]
     Active Substance: MACITENTAN
     Indication: PRODUCT USED FOR UNKNOWN INDICATION
  5. ORENITRAM [Suspect]
     Active Substance: TREPROSTINIL
     Dosage: TITRATE TO 12 MG, Q8H
     Route: 048
     Dates: start: 20140930
  6. ORENITRAM [Suspect]
     Active Substance: TREPROSTINIL
     Dosage: TITRATE TO 12 MG, TID
     Route: 048
     Dates: start: 20141006
  7. ORENITRAM [Suspect]
     Active Substance: TREPROSTINIL
     Dosage: 0.25 MG, Q8H
     Route: 048
     Dates: start: 20141006

REACTIONS (4)
  - Therapy cessation [Unknown]
  - Death [Fatal]
  - Cellulitis [Unknown]
  - Oedema [Unknown]

NARRATIVE: CASE EVENT DATE: 2014
